FAERS Safety Report 8495822-4 (Version None)
Quarter: 2012Q3

REPORT INFORMATION
  Report Type: 
  Country: None (occurrence: None)
  Receive Date: 20120709
  Receipt Date: 20120702
  Transmission Date: 20120928
  Serious: Yes (Hospitalization, Other)
  Sender: FDA-Public Use
  Company Number: PHHY2012MX045428

PATIENT
  Sex: Male

DRUGS (3)
  1. INSULIN [Concomitant]
     Indication: TYPE 1 DIABETES MELLITUS
     Dosage: 30 IU, UNK
  2. DIOVAN HCT [Suspect]
     Indication: HYPERTENSION
     Dosage: 1 DF (160 MG VALS AND 12.5 MG HYDRO) DAILY
     Dates: start: 20120108, end: 20120520
  3. INSULIN [Concomitant]
     Dosage: 15 IU, DAILY

REACTIONS (26)
  - ABDOMINAL DISTENSION [None]
  - MALAISE [None]
  - HYPERTENSION [None]
  - ANAEMIA [None]
  - RENAL DISORDER [None]
  - GASTRITIS [None]
  - BLOOD GLUCOSE INCREASED [None]
  - CHEST PAIN [None]
  - BLOOD CHOLESTEROL INCREASED [None]
  - VISION BLURRED [None]
  - RENAL INJURY [None]
  - VOMITING [None]
  - DIARRHOEA [None]
  - RENAL FAILURE [None]
  - FLUID RETENTION [None]
  - DYSPNOEA [None]
  - INFARCTION [None]
  - CHOKING [None]
  - ASPHYXIA [None]
  - OEDEMA PERIPHERAL [None]
  - CARDIAC MURMUR [None]
  - PANCREATITIS [None]
  - SYNCOPE [None]
  - ABDOMINAL PAIN UPPER [None]
  - PULMONARY OEDEMA [None]
  - EMOTIONAL DISORDER [None]
